FAERS Safety Report 5168374-4 (Version None)
Quarter: 2006Q4

REPORT INFORMATION
  Report Type: 
  Country: None (occurrence: None)
  Receive Date: 20061208
  Receipt Date: 20061128
  Transmission Date: 20070319
  Serious: Yes (Disabling)
  Sender: FDA-Public Use
  Company Number: EMADSS2003000566

PATIENT
  Sex: Female
  Weight: 22 kg

DRUGS (2)
  1. EPITOMAX [Suspect]
     Indication: SEVERE MENTAL RETARDATION
     Route: 048
  2. EPITOMAX [Suspect]
     Indication: MYOCLONIC EPILEPSY
     Route: 048

REACTIONS (3)
  - ANOREXIA [None]
  - DWARFISM [None]
  - GROWTH RETARDATION [None]
